FAERS Safety Report 7427534-X (Version None)
Quarter: 2011Q2

REPORT INFORMATION
  Report Type: 
  Country: None (occurrence: None)
  Receive Date: 20110420
  Receipt Date: 20110413
  Transmission Date: 20111010
  Serious: Yes (Other)
  Sender: FDA-Public Use
  Company Number: US-ABBOTT-11P-163-0718840-00

PATIENT
  Sex: Male

DRUGS (2)
  1. ZEMETA [Concomitant]
     Indication: PRODUCT USED FOR UNKNOWN INDICATION
  2. LUPRON DEPOT [Suspect]
     Indication: PROSTATE CANCER
     Dates: start: 20090803

REACTIONS (8)
  - BACK PAIN [None]
  - VOMITING [None]
  - DIARRHOEA [None]
  - PAIN [None]
  - INJECTION SITE ABSCESS [None]
  - NAUSEA [None]
  - MUSCULOSKELETAL PAIN [None]
  - LOCAL SWELLING [None]
